FAERS Safety Report 5891402-5 (Version None)
Quarter: 2008Q3

REPORT INFORMATION
  Report Type: 
  Country: None (occurrence: None)
  Receive Date: 20080922
  Receipt Date: 20080916
  Transmission Date: 20090109
  Serious: Yes (Life-Threatening, Hospitalization)
  Sender: FDA-Public Use
  Company Number: US-MERCK-0808USA02505

PATIENT
  Age: 4 Year
  Sex: Male
  Weight: 15 kg

DRUGS (5)
  1. SINGULAIR [Suspect]
     Indication: RHINITIS ALLERGIC
     Route: 048
     Dates: start: 20080104, end: 20080701
  2. SINGULAIR [Suspect]
     Indication: HYPERSENSITIVITY
     Route: 048
     Dates: start: 20080104, end: 20080701
  3. LORATADINE [Concomitant]
     Indication: HYPERSENSITIVITY
     Route: 065
  4. NASACORT AQ [Concomitant]
     Indication: HYPERSENSITIVITY
     Route: 065
  5. EPIPEN [Concomitant]
     Indication: HYPERSENSITIVITY
     Route: 065

REACTIONS (4)
  - DEPRESSION [None]
  - FEAR [None]
  - SOCIAL AVOIDANT BEHAVIOUR [None]
  - SUICIDAL IDEATION [None]
